FAERS Safety Report 18030909 (Version 1)
Quarter: 2020Q3

REPORT INFORMATION
  Report Type: Spontaneous
  Country: US (occurrence: US)
  Receive Date: 20200715
  Receipt Date: 20200715
  Transmission Date: 20201103
  Serious: Yes (Other)
  Sender: FDA-Public Use
  Company Number: None

PATIENT
  Age: 49 Year
  Sex: Female
  Weight: 77.4 kg

DRUGS (1)
  1. NP THYROID [Suspect]
     Active Substance: LEVOTHYROXINE\LIOTHYRONINE
     Indication: HYPOTHYROIDISM
     Dosage: ?          QUANTITY:2 TABLET(S);?
     Route: 048
     Dates: start: 20191007

REACTIONS (7)
  - Palpitations [None]
  - Headache [None]
  - Fatigue [None]
  - Pyrexia [None]
  - Temperature intolerance [None]
  - Urinary tract infection [None]
  - Dizziness [None]

NARRATIVE: CASE EVENT DATE: 20200301
